FAERS Safety Report 8302553-X (Version None)
Quarter: 2012Q2

REPORT INFORMATION
  Report Type: 
  Country: None (occurrence: None)
  Receive Date: 20120420
  Receipt Date: 20120411
  Transmission Date: 20120825
  Serious: Yes (Hospitalization, Other)
  Sender: FDA-Public Use
  Company Number: FI-ROCHE-1058686

PATIENT
  Sex: Male

DRUGS (4)
  1. AMITRID MITE [Concomitant]
     Route: 048
  2. AVASTIN [Suspect]
     Indication: AGE-RELATED MACULAR DEGENERATION
     Dosage: 25 MG/NL.CONCENTRATE FOR SOLUTION FOR INFUSION
     Route: 050
     Dates: start: 20120323, end: 20120323
  3. POTASSIUM CHLORIDE [Concomitant]
     Route: 048
  4. SELOPRAL [Concomitant]
     Route: 048

REACTIONS (2)
  - TRANSMISSION OF AN INFECTIOUS AGENT VIA A MEDICINAL PRODUCT [None]
  - ENDOPHTHALMITIS [None]
